FAERS Safety Report 5338590-7 (Version None)
Quarter: 2007Q2

REPORT INFORMATION
  Report Type: 
  Country: None (occurrence: None)
  Receive Date: 20070322
  Receipt Date: 20060710
  Transmission Date: 20071010
  Serious: Yes (Other)
  Sender: FDA-Public Use
  Company Number: 200612307BCC

PATIENT
  Sex: Female
  Weight: 64.4108 kg

DRUGS (3)
  1. ALEVE (CAPLET) [Suspect]
     Indication: ARTHRITIS
     Dosage: 220 MG, QD, ORAL
     Route: 048
  2. AROMASIN [Concomitant]
  3. EFFEXOR [Concomitant]

REACTIONS (1)
  - BLOOD PRESSURE INCREASED [None]
